FAERS Safety Report 8404131 (Version 2)
Quarter: 2013Q2

REPORT INFORMATION
  Report Type: Spontaneous
  Country: US (occurrence: None)
  Receive Date: 20111227
  Receipt Date: 20120426
  Transmission Date: 20140414
  Serious: Yes (Hospitalization, Other)
  Sender: FDA-Public Use
  Company Number: PHEH2011US009873

PATIENT
  Age: 43 Year
  Sex: Male

DRUGS (17)
  1. GILENYA [Suspect]
     Indication: RELAPSING-REMITTING MULTIPLE SCLEROSIS
     Route: 048
     Dates: start: 20111114, end: 20111116
  2. BETA BLOCKING AGENTS (NO INGREDIENTS/SUBSTANCES) [Concomitant]
  3. CALCIUM CHANNEL BLOCKERS (NO INGREDIENTS/SUBSTANCES) [Concomitant]
  4. ATENOLOL (ATENOLOL) [Concomitant]
  5. PLENDIL (FELODIPINE) [Concomitant]
  6. LISINOPRIL (LISINOPRIL) [Concomitant]
  7. VALIUM (DIAZEPAM) [Concomitant]
  8. ZOFRAN (ONDANSETRON HYDROCHLORIDE) [Concomitant]
  9. MEDROL (METHYLPREDNISOLONE) [Concomitant]
  10. PYRIDIUM (PHENAZOPYRIDINE HYDROCHLORIDE) [Concomitant]
  11. IMITREX (SUMATRIPTAN SUCCINATE) [Concomitant]
  12. PROMETHAZINE (PROMETHAZINE) [Concomitant]
  13. LORTAB (HYDROCODONE BITARTRATE, PARACETAMOL) [Concomitant]
  14. DILAUDID (HYDROMORPHONE HYDROCHLORIDE) [Concomitant]
  15. LOTRONEX (ALOSETRON) [Concomitant]
  16. FELODIPINE (FELODIPINE) [Concomitant]
  17. PHENERGAN (PROMETHAZINE HYDROCHLORIDE) [Concomitant]

REACTIONS (12)
  - BRADYCARDIA [None]
  - Sinus bradycardia [None]
  - Chest pain [None]
  - Hypotension [None]
  - Nausea [None]
  - Gastrooesophageal reflux disease [None]
  - Anxiety [None]
  - Dyspnoea [None]
  - Headache [None]
  - Dizziness [None]
  - Palpitations [None]
  - Feeling abnormal [None]
